FAERS Safety Report 4804965-5 (Version None)
Quarter: 2005Q4

REPORT INFORMATION
  Report Type: 
  Country: None (occurrence: None)
  Receive Date: 20051017
  Receipt Date: 20051005
  Transmission Date: 20060501
  Serious: Yes (Hospitalization)
  Sender: FDA-Public Use
  Company Number: 2005BH002283

PATIENT
  Age: 26 Year
  Sex: Female

DRUGS (2)
  1. ANTICOAGULANT SODIUM CITRATE SOLUTION 250 ML [Suspect]
     Indication: PLASMAPHERESIS
     Dates: start: 20050912, end: 20050912
  2. 0.9% SODIUM CHLOIDE INJECTION IN PLASTICOCONTAINER [Suspect]
     Indication: PLASMAPHERESIS
     Dates: start: 20050912, end: 20050912

REACTIONS (10)
  - ATRIAL FIBRILLATION [None]
  - CAFFEINE CONSUMPTION [None]
  - DIZZINESS [None]
  - FACE INJURY [None]
  - HEART RATE INCREASED [None]
  - HEART RATE IRREGULAR [None]
  - LACERATION [None]
  - PALPITATIONS [None]
  - POST PROCEDURAL COMPLICATION [None]
  - SYNCOPE VASOVAGAL [None]
